FAERS Safety Report 7401383-0 (Version None)
Quarter: 2011Q2

REPORT INFORMATION
  Report Type: 
  Country: None (occurrence: None)
  Receive Date: 20110407
  Receipt Date: 20110404
  Transmission Date: 20111010
  Serious: Yes (Hospitalization)
  Sender: FDA-Public Use
  Company Number: US-MERCK-1102USA03346

PATIENT
  Age: 66 Year
  Sex: Female

DRUGS (4)
  1. CRESTOR [Concomitant]
     Route: 065
  2. METFORMIN [Concomitant]
     Route: 065
  3. JANUVIA [Suspect]
     Indication: TYPE 2 DIABETES MELLITUS
     Route: 048
     Dates: start: 20081201, end: 20110201
  4. LISINOPRIL [Concomitant]
     Route: 065

REACTIONS (3)
  - NAUSEA [None]
  - LIPASE INCREASED [None]
  - VOMITING [None]
